FAERS Safety Report 10431027 (Version 1)
Quarter: 2014Q1

REPORT INFORMATION
  Report Type: Spontaneous
  Country: US (occurrence: None)
  Receive Date: 20130418
  Receipt Date: 20130418
  Transmission Date: 20141002
  Serious: Yes (Other)
  Sender: FDA-Public Use
  Company Number: 1301USA003623

PATIENT
  Age: 45 Year
  Sex: Female

DRUGS (2)
  1. SINGULAIR [Suspect]
     Indication: INNER EAR DISORDER
     Route: 048
  2. SINGULAIR [Suspect]
     Indication: MULTIPLE ALLERGIES
     Route: 048

REACTIONS (7)
  - Tremor [None]
  - Suicidal ideation [None]
  - Self-injurious ideation [None]
  - Nervousness [None]
  - Anxiety [None]
  - Anger [None]
  - Agitation [None]
